FAERS Safety Report 16837694 (Version 1)
Quarter: 2019Q3

REPORT INFORMATION
  Report Type: Spontaneous
  Country: US (occurrence: US)
  Receive Date: 20190923
  Receipt Date: 20190923
  Transmission Date: 20191005
  Serious: No
  Sender: FDA-Public Use
  Company Number: US-SHIRE-US201930915

PATIENT

DRUGS (2)
  1. VYVANSE [Suspect]
     Active Substance: LISDEXAMFETAMINE DIMESYLATE
     Indication: FATIGUE
     Dosage: UNK
     Route: 065
  2. VYVANSE [Suspect]
     Active Substance: LISDEXAMFETAMINE DIMESYLATE
     Indication: SYSTEMIC LUPUS ERYTHEMATOSUS

REACTIONS (7)
  - Hypersensitivity [Unknown]
  - Intentional product use issue [Unknown]
  - Lip swelling [Unknown]
  - Coxsackie viral infection [Unknown]
  - Oral pain [Unknown]
  - Swollen tongue [Unknown]
  - Stomatitis [Unknown]

NARRATIVE: CASE EVENT DATE: 201907
